FAERS Safety Report 9322147 (Version 4)
Quarter: 2013Q3

REPORT INFORMATION
  Report Type: Report from Study
  Country: US (occurrence: US)
  Receive Date: 20130531
  Receipt Date: 20130718
  Transmission Date: 20140515
  Serious: Yes (Hospitalization)
  Sender: FDA-Public Use
  Company Number: US-ABBOTT-13P-163-1095864-00

PATIENT
  Age: 42 Year
  Sex: Male
  Weight: 74.46 kg

DRUGS (1)
  1. HUMIRA [Suspect]
     Indication: CROHN^S DISEASE
     Route: 058
     Dates: start: 20130121, end: 201305

REACTIONS (6)
  - Ileus [Recovering/Resolving]
  - Vomiting [Recovering/Resolving]
  - Dyspepsia [Recovering/Resolving]
  - Hypophagia [Recovering/Resolving]
  - Blood magnesium decreased [Recovering/Resolving]
  - Blood potassium decreased [Recovering/Resolving]
